FAERS Safety Report 4528888-4 (Version None)
Quarter: 2004Q4

REPORT INFORMATION
  Report Type: 
  Country: None (occurrence: None)
  Receive Date: 20041214
  Receipt Date: 20041201
  Transmission Date: 20050328
  Serious: Yes (Other)
  Sender: FDA-Public Use
  Company Number: CEL-2004-02101-SLO

PATIENT
  Age: 8 Year
  Sex: Female

DRUGS (1)
  1. EQUASYM 5MG (METHYLPHENIDATE HYDROCHLORIDE) [Suspect]
     Dosage: 10MG MORNING, 5MG LUNCHTIME
     Dates: start: 20040401

REACTIONS (3)
  - SKIN DISCOLOURATION [None]
  - TRANCE [None]
  - TREMOR [None]
